FAERS Safety Report 16821468 (Version 2)
Quarter: 2021Q3

REPORT INFORMATION
  Report Type: Report from Study
  Country: CA (occurrence: CA)
  Receive Date: 20190918
  Receipt Date: 20210923
  Transmission Date: 20211014
  Serious: Yes (Other)
  Sender: FDA-Public Use
  Company Number: CA-PFIZER INC-2019394922

PATIENT
  Age: 38 Year
  Sex: Female

DRUGS (8)
  1. FAMPYRA [Concomitant]
     Active Substance: DALFAMPRIDINE
     Indication: MULTIPLE SCLEROSIS
     Dosage: UNK
     Route: 048
  2. REACTINE [CETIRIZINE HYDROCHLORIDE] [Concomitant]
     Active Substance: CETIRIZINE HYDROCHLORIDE
     Indication: PREMEDICATION
     Dosage: 5 MG, UNK
     Route: 048
     Dates: start: 20150802, end: 20150807
  3. ERGOCALCIFEROL. [Concomitant]
     Active Substance: ERGOCALCIFEROL
     Indication: MULTIPLE SCLEROSIS
     Dosage: UNK
     Route: 048
  4. RANITIDINE. [Concomitant]
     Active Substance: RANITIDINE
     Indication: PREMEDICATION
     Dosage: 150 MG, UNK
     Route: 048
     Dates: start: 20150802, end: 20150807
  5. ACYCLOVIR [ACICLOVIR] [Concomitant]
     Active Substance: ACYCLOVIR
     Indication: PREMEDICATION
     Dosage: 200 MG, UNK
     Route: 048
     Dates: start: 20150803, end: 20150907
  6. METHYLPREDNISOLONE SODIUM SUCCINATE. [Suspect]
     Active Substance: METHYLPREDNISOLONE SODIUM SUCCINATE
     Indication: PREMEDICATION
     Dosage: 1 G, UNK
     Route: 042
     Dates: start: 20150803, end: 20150807
  7. ALEMTUZUMAB [Suspect]
     Active Substance: ALEMTUZUMAB
     Indication: RELAPSING-REMITTING MULTIPLE SCLEROSIS
     Dosage: 12 MG, 1X/DAY
     Route: 042
     Dates: start: 20150803, end: 20150807
  8. CHROME [Concomitant]
     Dosage: UNK
     Route: 048

REACTIONS (29)
  - Nasopharyngitis [Recovered/Resolved]
  - Specific gravity urine decreased [Recovered/Resolved]
  - Urinary sediment present [Unknown]
  - Blood urine present [Recovered/Resolved]
  - Headache [Recovered/Resolved]
  - Lymphocyte count decreased [Recovered/Resolved]
  - Neck pain [Recovered/Resolved]
  - Abdominal pain [Recovered/Resolved]
  - Back pain [Recovered/Resolved]
  - Chills [Recovered/Resolved]
  - Erythema [Recovered/Resolved]
  - Lymphocyte percentage decreased [Recovered/Resolved]
  - Urinary tract infection [Recovered/Resolved]
  - Urine analysis abnormal [Recovered/Resolved]
  - Hyperthermia [Recovered/Resolved]
  - Neutrophil percentage increased [Recovered/Resolved]
  - Vaginal discharge [Unknown]
  - Abdominal discomfort [Unknown]
  - Red blood cells urine positive [Unknown]
  - Dyspepsia [Recovered/Resolved]
  - Eructation [Recovered/Resolved]
  - Nitrite urine present [Recovered/Resolved]
  - Poor quality sleep [Unknown]
  - Nausea [Recovered/Resolved]
  - Pruritus [Recovered/Resolved]
  - Vomiting [Recovered/Resolved]
  - Immunodeficiency [Unknown]
  - White blood cell count decreased [Recovered/Resolved]
  - Bacterial test [Recovered/Resolved]

NARRATIVE: CASE EVENT DATE: 201508
